FAERS Safety Report 4505349-X (Version None)
Quarter: 2004Q4

REPORT INFORMATION
  Report Type: 
  Country: None (occurrence: None)
  Receive Date: 20041119
  Receipt Date: 20041019
  Transmission Date: 20050328
  Serious: Yes (Death)
  Sender: FDA-Public Use
  Company Number: 200413927FR

PATIENT
  Age: 80 Year
  Sex: Male
  Weight: 100 kg

DRUGS (6)
  1. DI-ANTALVIC [Suspect]
     Route: 048
     Dates: start: 20021128, end: 20030202
  2. OFLOCET [Suspect]
     Route: 048
     Dates: start: 20030121, end: 20030125
  3. LOVENOX [Suspect]
     Route: 058
     Dates: start: 20021219, end: 20030219
  4. VANCOMYCIN [Suspect]
     Route: 042
     Dates: start: 20021219, end: 20030125
  5. FORTUM [Concomitant]
     Dates: start: 20031219, end: 20040101
  6. GENTAMYCIN SULFATE [Concomitant]
     Dates: start: 20031219, end: 20040101

REACTIONS (5)
  - DERMATITIS BULLOUS [None]
  - RENAL FAILURE [None]
  - SHOCK [None]
  - TOXIC EPIDERMAL NECROLYSIS [None]
  - TOXIC SKIN ERUPTION [None]
